FAERS Safety Report 24057761 (Version 1)
Quarter: 2024Q3

REPORT INFORMATION
  Report Type: Spontaneous
  Country: US (occurrence: None)
  Receive Date: 20240707
  Receipt Date: 20240707
  Transmission Date: 20241016
  Serious: No
  Sender: ASTRAZENECA
  Company Number: 2024A153641

PATIENT

DRUGS (3)
  1. BYDUREON BCISE [Suspect]
     Active Substance: EXENATIDE
  2. TRULICITY [Concomitant]
     Active Substance: DULAGLUTIDE
  3. OZEMPIC [Concomitant]
     Active Substance: SEMAGLUTIDE

REACTIONS (4)
  - Administration site pain [Unknown]
  - Pain in extremity [Unknown]
  - Blood glucose increased [Unknown]
  - Fat tissue increased [Unknown]
